FAERS Safety Report 21095578 (Version 3)
Quarter: 2022Q4

REPORT INFORMATION
  Report Type: Spontaneous
  Country: US (occurrence: US)
  Receive Date: 20220718
  Receipt Date: 20221221
  Transmission Date: 20230113
  Serious: No
  Sender: FDA-Public Use
  Company Number: US-PFIZER INC-202200965708

PATIENT
  Age: 79 Year
  Sex: Female
  Weight: 99.79 kg

DRUGS (1)
  1. IBRANCE [Suspect]
     Active Substance: PALBOCICLIB
     Indication: Breast cancer female
     Dosage: 125 MG, 1X/DAY (CYCLIC)
     Route: 048
     Dates: start: 202206

REACTIONS (3)
  - Gastrooesophageal reflux disease [Recovering/Resolving]
  - Epistaxis [Unknown]
  - Stomatitis [Unknown]

NARRATIVE: CASE EVENT DATE: 20220101
